FAERS Safety Report 6550472-1 (Version None)
Quarter: 2010Q1

REPORT INFORMATION
  Report Type: 
  Country: None (occurrence: None)
  Receive Date: 20100125
  Receipt Date: 20100121
  Transmission Date: 20100710
  Serious: Yes (Other)
  Sender: FDA-Public Use
  Company Number: A0840730A

PATIENT
  Age: 56 Year
  Sex: Female

DRUGS (10)
  1. VERAMYST [Suspect]
     Dosage: 2SPR PER DAY
     Route: 045
     Dates: start: 20090301, end: 20090101
  2. DIAVAN [Concomitant]
  3. ELIDEL [Concomitant]
  4. METROGEL CREAM [Concomitant]
  5. ESTRADERM [Concomitant]
     Route: 061
  6. VITAMIN C [Concomitant]
  7. VITAMIN E [Concomitant]
  8. M.V.I. [Concomitant]
  9. CALCIUM [Concomitant]
  10. MAGNESIUM [Concomitant]

REACTIONS (1)
  - THROMBOSIS [None]
